FAERS Safety Report 11186541 (Version 3)
Quarter: 2015Q3

REPORT INFORMATION
  Report Type: Report from Study
  Country: CA (occurrence: CA)
  Receive Date: 20150613
  Receipt Date: 20150911
  Transmission Date: 20151125
  Serious: Yes (Other)
  Sender: FDA-Public Use
  Company Number: CA-BIOGENIDEC-2015BI079094

PATIENT
  Age: 62 Year
  Sex: Female

DRUGS (1)
  1. FAMPYRA [Suspect]
     Active Substance: DALFAMPRIDINE
     Indication: GAIT DISTURBANCE
     Route: 048
     Dates: start: 20120730, end: 20150529

REACTIONS (7)
  - Transient ischaemic attack [Unknown]
  - Loss of control of legs [Unknown]
  - Fall [Recovered/Resolved]
  - Muscular weakness [Not Recovered/Not Resolved]
  - Optic neuritis [Not Recovered/Not Resolved]
  - Multiple sclerosis relapse [Unknown]
  - Bone contusion [Recovered/Resolved]

NARRATIVE: CASE EVENT DATE: 20150325
